FAERS Safety Report 7617366-1 (Version None)
Quarter: 2011Q3

REPORT INFORMATION
  Report Type: 
  Country: None (occurrence: None)
  Receive Date: 20110718
  Receipt Date: 20110712
  Transmission Date: 20111222
  Serious: Yes (Other)
  Sender: FDA-Public Use
  Company Number: AT-BRISTOL-MYERS SQUIBB COMPANY-15762586

PATIENT
  Age: 52 Year
  Sex: Male
  Weight: 86 kg

DRUGS (7)
  1. CALCIUM CARBONATE + CHOLECALCIFEROL [Concomitant]
     Dosage: SUGAR-COATED PILL. FOR CHEWING
  2. METHOTREXATE [Concomitant]
  3. FOLSAN [Concomitant]
  4. OLEOVIT [Concomitant]
  5. PREDNISOLONE [Suspect]
     Indication: ULCERATIVE KERATITIS
     Route: 048
     Dates: start: 20100301, end: 20101201
  6. PREDNISOLONE [Suspect]
     Indication: RHEUMATOID ARTHRITIS
     Route: 048
     Dates: start: 20100301, end: 20101201
  7. ORENCIA [Suspect]
     Indication: RHEUMATOID ARTHRITIS
     Dates: start: 20100615

REACTIONS (2)
  - WEIGHT INCREASED [None]
  - DIABETES MELLITUS [None]
